FAERS Safety Report 12340339 (Version 1)
Quarter: 2016Q2

REPORT INFORMATION
  Report Type: Spontaneous
  Country: US (occurrence: None)
  Receive Date: 20160505
  Receipt Date: 20160505
  Transmission Date: 20160815
  Serious: Yes (Disabling)
  Sender: FDA-Public Use
  Company Number: None

PATIENT
  Age: 56 Year
  Sex: Male
  Weight: 78.02 kg

DRUGS (9)
  1. ATORVASTATIN [Concomitant]
     Active Substance: ATORVASTATIN
  2. CHANTIX [Concomitant]
     Active Substance: VARENICLINE TARTRATE
  3. ENALAPRIL [Concomitant]
     Active Substance: ENALAPRIL
  4. CHANTIX [Suspect]
     Active Substance: VARENICLINE TARTRATE
     Indication: SMOKING CESSATION THERAPY
     Route: 048
     Dates: start: 20160304, end: 20160504
  5. CLOPIDOGREL [Concomitant]
     Active Substance: CLOPIDOGREL BISULFATE
  6. NOVOLOG [Concomitant]
     Active Substance: INSULIN ASPART
  7. ASPRIN [Concomitant]
     Active Substance: ASPIRIN
  8. LEVEMIR [Concomitant]
     Active Substance: INSULIN DETEMIR
  9. METOPROLOL. [Concomitant]
     Active Substance: METOPROLOL

REACTIONS (1)
  - Blood glucose increased [None]

NARRATIVE: CASE EVENT DATE: 20160319
